FAERS Safety Report 6751305-0 (Version None)
Quarter: 2010Q2

REPORT INFORMATION
  Report Type: 
  Country: None (occurrence: None)
  Receive Date: 20100602
  Receipt Date: 20100520
  Transmission Date: 20101027
  Serious: Yes (Other)
  Sender: FDA-Public Use
  Company Number: PHHY2010US33163

PATIENT
  Sex: Male

DRUGS (1)
  1. GLEEVEC [Suspect]
     Dosage: UNK
     Dates: start: 20090101

REACTIONS (6)
  - BLOOD TRIGLYCERIDES INCREASED [None]
  - COUGH [None]
  - OSTEOPENIA [None]
  - PYREXIA [None]
  - RHINITIS ALLERGIC [None]
  - RHINORRHOEA [None]
